FAERS Safety Report 17707267 (Version 1)
Quarter: 2020Q2

REPORT INFORMATION
  Report Type: Spontaneous
  Country: FR (occurrence: FR)
  Receive Date: 20200424
  Receipt Date: 20200424
  Transmission Date: 20200714
  Serious: Yes (Other)
  Sender: FDA-Public Use
  Company Number: FR-ALLERGAN-2016501US

PATIENT
  Sex: Female

DRUGS (7)
  1. FLURBIPROFEN SODIUM UNK [Suspect]
     Active Substance: FLURBIPROFEN SODIUM
     Indication: CATARACT
     Dosage: 1 GTT, TID
     Route: 047
     Dates: start: 202003
  2. AZYTER [Suspect]
     Active Substance: AZITHROMYCIN ANHYDROUS
     Indication: CATARACT
     Dosage: 1 GTT, BID
     Route: 047
     Dates: start: 202003, end: 202003
  3. LIPANTHYL [Concomitant]
     Active Substance: FENOFIBRATE
     Dosage: UNK
  4. DEXAFREE [Suspect]
     Active Substance: DEXAMETHASONE SODIUM PHOSPHATE
     Indication: CATARACT
     Dosage: 1 GTT, TID
     Route: 047
     Dates: start: 202003
  5. DEXAFREE [Suspect]
     Active Substance: DEXAMETHASONE SODIUM PHOSPHATE
     Dosage: 1 GTT, QD
     Route: 047
  6. APROKAM [Suspect]
     Active Substance: CEFUROXIME SODIUM
     Indication: CATARACT
     Dosage: UNK, SINGLE
     Dates: start: 20200309, end: 20200309
  7. DEXAFREE [Suspect]
     Active Substance: DEXAMETHASONE SODIUM PHOSPHATE
     Dosage: 1 GTT, BID
     Route: 047

REACTIONS (1)
  - Endophthalmitis [Recovering/Resolving]
